FAERS Safety Report 14925455 (Version 2)
Quarter: 2018Q3

REPORT INFORMATION
  Report Type: Spontaneous
  Country: ZA (occurrence: ZA)
  Receive Date: 20180522
  Receipt Date: 20180807
  Transmission Date: 20181010
  Serious: Yes (Hospitalization)
  Sender: FDA-Public Use
  Company Number: PHHY2018ZA001798

PATIENT
  Sex: Female

DRUGS (1)
  1. ESTRADOT [Suspect]
     Active Substance: ESTRADIOL
     Indication: HORMONE REPLACEMENT THERAPY
     Dosage: 50 UG, UNK
     Route: 062
     Dates: start: 201712

REACTIONS (2)
  - Nasopharyngitis [Unknown]
  - Pain [Unknown]
